FAERS Safety Report 15492582 (Version 1)
Quarter: 2018Q4

REPORT INFORMATION
  Report Type: Spontaneous
  Country: US (occurrence: US)
  Receive Date: 20181004
  Receipt Date: 20181004
  Transmission Date: 20190205
  Serious: No
  Sender: FDA-Public Use
  Company Number: None

PATIENT
  Age: 10 Year
  Sex: Male
  Weight: 38.25 kg

DRUGS (2)
  1. ZYRTEC [Concomitant]
     Active Substance: CETIRIZINE HYDROCHLORIDE
  2. POLYETHELENE GLYCOL [Suspect]
     Active Substance: POLYETHYLENE GLYCOL 3350
     Indication: CONSTIPATION
     Dosage: ?          QUANTITY:17 MILIGRAMS;?
     Route: 048
     Dates: start: 20181002, end: 20181003

REACTIONS (5)
  - Sleep disorder [None]
  - Diarrhoea [None]
  - Fall [None]
  - Restlessness [None]
  - Fatigue [None]

NARRATIVE: CASE EVENT DATE: 20181002
